FAERS Safety Report 9612527 (Version 1)
Quarter: 2013Q4

REPORT INFORMATION
  Report Type: Spontaneous
  Country: US (occurrence: None)
  Receive Date: 20131008
  Receipt Date: 20131008
  Transmission Date: 20140711
  Serious: Yes (Other)
  Sender: FDA-Public Use
  Company Number: 2013TP000561

PATIENT
  Age: 84 Year
  Sex: Female

DRUGS (1)
  1. LIDODERM (5 PCT) [Suspect]
     Indication: PRODUCT USED FOR UNKNOWN INDICATION
     Route: 061
     Dates: start: 2004

REACTIONS (3)
  - Neoplasm [None]
  - Nuclear magnetic resonance imaging [None]
  - Surgery [None]
